FAERS Safety Report 9144051 (Version 1)
Quarter: 2013Q1

REPORT INFORMATION
  Report Type: Spontaneous
  Country: JO (occurrence: JO)
  Receive Date: 20130306
  Receipt Date: 20130306
  Transmission Date: 20140127
  Serious: Yes (Disabling)
  Sender: FDA-Public Use
  Company Number: JO-BAYER-2013-028129

PATIENT
  Age: 39 Year
  Sex: Female
  Weight: 84.99 kg

DRUGS (1)
  1. YAZ [Suspect]
     Indication: CONTRACEPTION
     Dosage: UNK, QD, 24/4
     Route: 048
     Dates: start: 201212, end: 201301

REACTIONS (1)
  - Arthralgia [Recovered/Resolved]
